FAERS Safety Report 7035512-8 (Version None)
Quarter: 2010Q4

REPORT INFORMATION
  Report Type: 
  Country: None (occurrence: None)
  Receive Date: 20101008
  Receipt Date: 20100929
  Transmission Date: 20110411
  Serious: Yes (Other)
  Sender: FDA-Public Use
  Company Number: US-PFIZER INC-2010124107

PATIENT
  Sex: Female
  Weight: 63.492 kg

DRUGS (6)
  1. GEODON [Suspect]
     Indication: BIPOLAR DISORDER
     Dosage: 20 MG, 1X/DAY
     Route: 048
     Dates: start: 20100601
  2. TOPAMAX [Suspect]
     Indication: BIPOLAR DISORDER
     Dosage: UNK
     Route: 048
     Dates: start: 20091001, end: 20100601
  3. WELLBUTRIN [Concomitant]
     Indication: DEPRESSIVE SYMPTOM
     Dosage: 100 MG, 1X/DAY
     Route: 048
  4. ADDERALL 10 [Concomitant]
     Indication: BIPOLAR DISORDER
     Dosage: 30 MG, 1X/DAY
     Route: 048
  5. CLONIDINE HYDROCHLORIDE [Concomitant]
     Indication: INSOMNIA
     Dosage: 0.2 MG, 1X/DAY
     Route: 048
  6. BENZATROPINE [Concomitant]
     Indication: BIPOLAR DISORDER
     Dosage: 0.5 MG, 1X/DAY
     Route: 048

REACTIONS (8)
  - ALOPECIA [None]
  - COGNITIVE DISORDER [None]
  - PROTEIN TOTAL INCREASED [None]
  - RASH PRURITIC [None]
  - TREMOR [None]
  - URTICARIA [None]
  - VISION BLURRED [None]
  - VISUAL IMPAIRMENT [None]
